FAERS Safety Report 7276101-X (Version None)
Quarter: 2011Q1

REPORT INFORMATION
  Report Type: 
  Country: None (occurrence: None)
  Receive Date: 20110204
  Receipt Date: 20110125
  Transmission Date: 20110831
  Serious: Yes (Hospitalization)
  Sender: FDA-Public Use
  Company Number: US-ASTRAZENECA-2010SE54986

PATIENT
  Age: 72 Year
  Sex: Female
  Weight: 70.3 kg

DRUGS (17)
  1. CELEBREX [Concomitant]
     Indication: OSTEOARTHRITIS
  2. ACCOLATE [Suspect]
     Indication: ASTHMA
     Route: 048
  3. BACTRIM [Concomitant]
     Indication: SINUSITIS
  4. NEURONTIN [Concomitant]
     Indication: ARTHRITIS
  5. NEURONTIN [Concomitant]
     Indication: CROHN'S DISEASE
  6. PULMICORT FLEXHALER [Suspect]
     Route: 055
  7. TRAZODONE HCL [Concomitant]
     Indication: ARTHRITIS
  8. PULMICORT FLEXHALER [Suspect]
     Route: 055
  9. TRAZODONE HCL [Concomitant]
     Indication: CROHN'S DISEASE
  10. DILTIAZEM [Concomitant]
     Indication: HYPERTENSION
  11. FLONASE [Concomitant]
  12. PULMICORT FLEXHALER [Suspect]
     Indication: ASTHMA
     Route: 055
     Dates: start: 20101021
  13. PRILOSEC OTC [Concomitant]
     Route: 048
  14. LIALDA [Concomitant]
     Indication: CROHN'S DISEASE
  15. CELEBREX [Concomitant]
     Indication: PAIN
  16. ALLEGRA [Concomitant]
     Indication: MULTIPLE ALLERGIES
  17. ALBUTEROL [Concomitant]

REACTIONS (9)
  - PYREXIA [None]
  - CHEST X-RAY ABNORMAL [None]
  - DYSPNOEA [None]
  - KNEE ARTHROPLASTY [None]
  - WHEEZING [None]
  - ASTHMA [None]
  - DRUG INEFFECTIVE [None]
  - BLOOD PRESSURE INCREASED [None]
  - PNEUMONIA PRIMARY ATYPICAL [None]
